FAERS Safety Report 19134064 (Version 1)
Quarter: 2021Q2

REPORT INFORMATION
  Report Type: Spontaneous
  Country: CA (occurrence: CA)
  Receive Date: 20210414
  Receipt Date: 20210414
  Transmission Date: 20210717
  Serious: Yes (Life-Threatening)
  Sender: FDA-Public Use
  Company Number: CA-PFIZER INC-2021381391

PATIENT
  Age: 44 Year
  Sex: Female
  Weight: 84 kg

DRUGS (5)
  1. ALESSE 28 [Suspect]
     Active Substance: ETHINYL ESTRADIOL\LEVONORGESTREL
     Indication: DYSMENORRHOEA
  2. DEXILANT [Concomitant]
     Active Substance: DEXLANSOPRAZOLE
  3. ALESSE 28 [Suspect]
     Active Substance: ETHINYL ESTRADIOL\LEVONORGESTREL
     Indication: UTERINE LEIOMYOMA
     Dosage: 1 DF, 1X/DAY
     Route: 048
  4. ALESSE 28 [Suspect]
     Active Substance: ETHINYL ESTRADIOL\LEVONORGESTREL
     Indication: CONTRACEPTION
  5. ZOPICLONE [Concomitant]
     Active Substance: ZOPICLONE

REACTIONS (11)
  - Paraesthesia [Unknown]
  - Anxiety [Unknown]
  - Dysphagia [Unknown]
  - Gastroenteritis viral [Unknown]
  - Head discomfort [Unknown]
  - Cerebrovascular accident [Unknown]
  - Movement disorder [Unknown]
  - Aphasia [Unknown]
  - Hyperthyroidism [Unknown]
  - Muscular weakness [Unknown]
  - Diarrhoea [Unknown]
